FAERS Safety Report 9764693 (Version 1)
Quarter: 2013Q4

REPORT INFORMATION
  Report Type: Spontaneous
  Country: US (occurrence: None)
  Receive Date: 20131216
  Receipt Date: 20131216
  Transmission Date: 20140711
  Serious: Yes (Other)
  Sender: FDA-Public Use
  Company Number: None

PATIENT
  Age: 22 Year
  Sex: Female

DRUGS (3)
  1. ALBUTEROL SULFATE INHALATION SOLUTION [Suspect]
     Indication: RALES
     Dosage: 1/2 VIAL 4-6 HOURS EVERY INHLATION BY MOUTH/NOSE
     Route: 055
     Dates: start: 20131007, end: 20131017
  2. IBUPROFEN [Concomitant]
  3. ALLERGY [Concomitant]

REACTIONS (2)
  - Malaise [None]
  - Drug effect decreased [None]
